FAERS Safety Report 4859751-7 (Version None)
Quarter: 2005Q4

REPORT INFORMATION
  Report Type: 
  Country: None (occurrence: None)
  Receive Date: 20051219
  Receipt Date: 20041119
  Transmission Date: 20060501
  Serious: No
  Sender: FDA-Public Use
  Company Number: US-GLAXOSMITHKLINE-A0534600A

PATIENT
  Sex: Female

DRUGS (2)
  1. NICODERM (RX) [Suspect]
  2. NICODERM CQ [Suspect]
     Dates: start: 20041113

REACTIONS (5)
  - DIZZINESS [None]
  - EMPHYSEMA [None]
  - HYPERHIDROSIS [None]
  - PALPITATIONS [None]
  - VERTIGO [None]
